FAERS Safety Report 11054261 (Version 2)
Quarter: 2015Q3

REPORT INFORMATION
  Report Type: Report from Study
  Country: JP (occurrence: JP)
  Receive Date: 20150422
  Receipt Date: 20150904
  Transmission Date: 20151125
  Serious: Yes (Hospitalization)
  Sender: FDA-Public Use
  Company Number: JP-ROCHE-1559740

PATIENT
  Age: 45 Year
  Sex: Male

DRUGS (10)
  1. TRAZENTA [Suspect]
     Active Substance: LINAGLIPTIN
     Indication: PRODUCT USED FOR UNKNOWN INDICATION
     Route: 048
     Dates: start: 20131210, end: 20131212
  2. AMLODIPINE [Concomitant]
     Active Substance: AMLODIPINE BESYLATE
     Route: 048
  3. AIMIX [Concomitant]
     Active Substance: AMLODIPINE BESYLATE\IRBESARTAN
     Route: 048
     Dates: start: 20131210, end: 20140107
  4. METHOXY POLYETHYLENE GLYCOL-EPOETIN BETA [Suspect]
     Active Substance: METHOXY POLYETHYLENE GLYCOL-EPOETIN BETA
     Indication: NEPHROGENIC ANAEMIA
     Route: 058
     Dates: start: 20131210, end: 20140107
  5. DAONIL [Concomitant]
     Active Substance: GLYBURIDE
     Route: 048
     Dates: end: 20131210
  6. ACTOS [Concomitant]
     Active Substance: PIOGLITAZONE HYDROCHLORIDE
     Route: 048
     Dates: end: 20131210
  7. ALDACTONE A [Concomitant]
     Active Substance: SPIRONOLACTONE
     Route: 048
  8. SUREPOST [Concomitant]
     Active Substance: REPAGLINIDE
     Route: 048
     Dates: start: 20131210
  9. GLACTIV [Concomitant]
     Active Substance: SITAGLIPTIN
     Route: 048
     Dates: end: 20131210
  10. DIOVAN [Concomitant]
     Active Substance: VALSARTAN
     Route: 048

REACTIONS (6)
  - Hypoglycaemia [Recovered/Resolved]
  - Blood pressure increased [Recovered/Resolved]
  - Hypoalbuminaemia [Recovered/Resolved]
  - Pulmonary oedema [Unknown]
  - Pneumonia [Recovered/Resolved]
  - Infection [Unknown]

NARRATIVE: CASE EVENT DATE: 20131212
